FAERS Safety Report 17863506 (Version 2)
Quarter: 2021Q3

REPORT INFORMATION
  Report Type: Report from Study
  Country: CA (occurrence: CA)
  Receive Date: 20200604
  Receipt Date: 20210920
  Transmission Date: 20211014
  Serious: Yes (Hospitalization)
  Sender: FDA-Public Use
  Company Number: PHHY2014CA075614

PATIENT
  Age: 67 Year
  Sex: Female

DRUGS (14)
  1. SANDOSTATIN [Suspect]
     Active Substance: OCTREOTIDE ACETATE
  2. SANDOSTATIN [Suspect]
     Active Substance: OCTREOTIDE ACETATE
  3. SANDOSTATIN [Suspect]
     Active Substance: OCTREOTIDE ACETATE
     Indication: ACROMEGALY
     Dosage: ONCE/SINGLE
     Route: 058
     Dates: start: 20080415, end: 20080415
  4. SANDOSTATIN LAR DEPOT [Suspect]
     Active Substance: OCTREOTIDE ACETATE
     Dosage: 40 MG, Q3W
     Route: 030
     Dates: start: 20150716
  5. INSULIN [Concomitant]
     Active Substance: INSULIN NOS
     Dosage: 12 U, 4 UNITS IN THE MORNING AND 8 UNITS IN THE AFTERNOON
     Route: 065
  6. INSULIN [Concomitant]
     Active Substance: INSULIN NOS
     Indication: DIABETES MELLITUS
     Dosage: 18 IU, BID
     Route: 065
  7. CHLORTHALIDONE. [Concomitant]
     Active Substance: CHLORTHALIDONE
     Indication: DIURETIC THERAPY
     Dosage: 0.5 DF, QD
     Route: 048
  8. HYDROCHLOROTHIAZIDE. [Concomitant]
     Active Substance: HYDROCHLOROTHIAZIDE
     Indication: DIURETIC THERAPY
     Dosage: 25 MG, UNK
     Route: 065
  9. INSULIN [Concomitant]
     Active Substance: INSULIN NOS
     Dosage: 5 MG, (AT SUPPER)
     Route: 065
  10. SANDOSTATIN LAR DEPOT [Suspect]
     Active Substance: OCTREOTIDE ACETATE
  11. SANDOSTATIN LAR DEPOT [Suspect]
     Active Substance: OCTREOTIDE ACETATE
     Indication: ACROMEGALY
     Dosage: 40 MG, QMO (EVERY 4 WEEKS)
     Route: 030
     Dates: start: 20080513
  12. METFORMIN [Concomitant]
     Active Substance: METFORMIN HYDROCHLORIDE
     Indication: DIABETES MELLITUS
     Dosage: 2 DF, BID
     Route: 048
  13. ASPIRIN. [Concomitant]
     Active Substance: ASPIRIN
     Indication: PRODUCT USED FOR UNKNOWN INDICATION
     Dosage: 90 MG, QD
     Route: 065
  14. HYDROCHLOROTHIAZIDE. [Concomitant]
     Active Substance: HYDROCHLOROTHIAZIDE
     Dosage: 12.5 MG, QD
     Route: 065

REACTIONS (22)
  - Weight bearing difficulty [Recovering/Resolving]
  - Gait disturbance [Recovering/Resolving]
  - Body temperature decreased [Recovering/Resolving]
  - Nausea [Recovered/Resolved]
  - Heart rate decreased [Recovering/Resolving]
  - Blood glucose decreased [Unknown]
  - Peripheral swelling [Recovered/Resolved]
  - Femur fracture [Unknown]
  - Blood uric acid increased [Unknown]
  - Blood pressure systolic increased [Unknown]
  - Fall [Unknown]
  - Gout [Recovered/Resolved]
  - Musculoskeletal stiffness [Unknown]
  - Vomiting [Recovered/Resolved]
  - Back pain [Unknown]
  - Pain in extremity [Recovering/Resolving]
  - Weight increased [Unknown]
  - Blood pressure increased [Unknown]
  - Inappropriate schedule of product administration [Unknown]
  - Nerve compression [Unknown]
  - Influenza [Recovered/Resolved]
  - Influenza like illness [Recovered/Resolved]

NARRATIVE: CASE EVENT DATE: 201409
